FAERS Safety Report 4862135-9 (Version None)
Quarter: 2005Q4

REPORT INFORMATION
  Report Type: 
  Country: None (occurrence: None)
  Receive Date: 20051221
  Receipt Date: 20051209
  Transmission Date: 20060501
  Serious: Yes (Other)
  Sender: FDA-Public Use
  Company Number: CA-BRISTOL-MYERS SQUIBB COMPANY-13218284

PATIENT
  Age: 69 Year
  Sex: Female

DRUGS (12)
  1. TEQUIN [Suspect]
     Route: 048
  2. DESIPRAMINE HCL [Concomitant]
  3. DILTIAZEM HCL [Concomitant]
  4. DOCUSATE [Concomitant]
  5. FUROSEMIDE [Concomitant]
  6. GLYBURIDE [Concomitant]
  7. INDAPAMIDE [Concomitant]
  8. LOSARTAN [Concomitant]
  9. POTASSIUM CHLORIDE [Concomitant]
  10. PREMARIN [Concomitant]
  11. SALBUTAMOL [Concomitant]
  12. SPIRIVA [Concomitant]

REACTIONS (2)
  - HYPERGLYCAEMIA [None]
  - HYPOGLYCAEMIA [None]
